FAERS Safety Report 16296328 (Version 4)
Quarter: 2020Q4

REPORT INFORMATION
  Report Type: Report from Study
  Country: BR (occurrence: BR)
  Receive Date: 20190510
  Receipt Date: 20201221
  Transmission Date: 20210113
  Serious: Yes (Life-Threatening, Other)
  Sender: FDA-Public Use
  Company Number: PHHY2019BR106049

PATIENT
  Age: 58 Year
  Sex: Female

DRUGS (2)
  1. COSENTYX [Suspect]
     Active Substance: SECUKINUMAB
     Indication: PSORIATIC ARTHROPATHY
     Dosage: 300 MG, UNKNOWN
     Route: 065
     Dates: start: 20180411
  2. COSENTYX [Suspect]
     Active Substance: SECUKINUMAB
     Dosage: UNK
     Route: 065
     Dates: start: 20190821

REACTIONS (12)
  - Wound [Not Recovered/Not Resolved]
  - Gastric disorder [Unknown]
  - Feeling abnormal [Unknown]
  - Concomitant disease aggravated [Not Recovered/Not Resolved]
  - Mental disorder [Unknown]
  - Psoriatic arthropathy [Not Recovered/Not Resolved]
  - Nervousness [Unknown]
  - Depressed mood [Not Recovered/Not Resolved]
  - Psoriasis [Not Recovered/Not Resolved]
  - Oropharyngeal discomfort [Unknown]
  - Skin exfoliation [Not Recovered/Not Resolved]
  - Decreased interest [Unknown]

NARRATIVE: CASE EVENT DATE: 20190925
